FAERS Safety Report 7762521-3 (Version None)
Quarter: 2011Q3

REPORT INFORMATION
  Report Type: 
  Country: None (occurrence: None)
  Receive Date: 20110920
  Receipt Date: 20110826
  Transmission Date: 20111222
  Serious: No
  Sender: FDA-Public Use
  Company Number: US-MYLANLABS-2011S1018096

PATIENT
  Age: 64 Year
  Sex: Female

DRUGS (9)
  1. INTERFERON [Concomitant]
     Indication: MULTIPLE SCLEROSIS
     Route: 030
  2. BUPROPION HCL RETARD TABLETS SR (SMOKING CESSATION) 150 MG [Concomitant]
     Indication: DEPRESSION
     Route: 048
  3. RADIATION THERAPY [Suspect]
     Indication: BREAST CANCER
     Dates: start: 20100101, end: 20100101
  4. LEXAPRO [Concomitant]
     Indication: DEPRESSION
     Route: 048
  5. LANSOPRAZOLE [Concomitant]
     Indication: GASTROOESOPHAGEAL REFLUX DISEASE
     Route: 048
  6. CALCIUM CARBONATE [Concomitant]
     Indication: MINERAL SUPPLEMENTATION
     Route: 048
  7. BUPROPION HYDROCHLORIDE [Concomitant]
     Indication: DEPRESSION
     Route: 048
  8. ANASTROZOLE [Suspect]
     Indication: BREAST CANCER
     Route: 048
     Dates: start: 20110101
  9. ENALAPRIL MALEATE [Concomitant]
     Indication: BLOOD PRESSURE
     Route: 048

REACTIONS (2)
  - JOINT STIFFNESS [None]
  - ARTHRALGIA [None]
